FAERS Safety Report 16862346 (Version 4)
Quarter: 2019Q4

REPORT INFORMATION
  Report Type: Report from Study
  Country: US (occurrence: US)
  Receive Date: 20190927
  Receipt Date: 20191223
  Transmission Date: 20200122
  Serious: Yes (Death, Hospitalization, Other)
  Sender: FDA-Public Use
  Company Number: US-GILEAD-2019-0430483

PATIENT
  Age: 51 Year
  Sex: Male
  Weight: 73.02 kg

DRUGS (10)
  1. TAMSULOSIN [Concomitant]
     Active Substance: TAMSULOSIN
  2. IBUPROFEN. [Concomitant]
     Active Substance: IBUPROFEN
  3. SOFOSBUVIR W/VELPATASVIR [Suspect]
     Active Substance: SOFOSBUVIR\VELPATASVIR
     Indication: HEPATITIS C
     Dosage: 1 DOSAGE FORM, QD
     Route: 048
     Dates: end: 20190822
  4. FLUOXETINE [Concomitant]
     Active Substance: FLUOXETINE HYDROCHLORIDE
  5. NALOXONE [Concomitant]
     Active Substance: NALOXONE
  6. ALBUTEROL SULFATE. [Concomitant]
     Active Substance: ALBUTEROL SULFATE
     Indication: WHEEZING
     Dosage: UNK, PRN
  7. METOPROLOL TARTRATE. [Concomitant]
     Active Substance: METOPROLOL TARTRATE
  8. DULERA [Concomitant]
     Active Substance: FORMOTEROL FUMARATE DIHYDRATE\MOMETASONE FUROATE
  9. FINASTERIDE. [Concomitant]
     Active Substance: FINASTERIDE
  10. CEPHALEXIN [CEFALEXIN] [Concomitant]
     Active Substance: CEPHALEXIN

REACTIONS (7)
  - Pericarditis [Fatal]
  - Pulmonary embolism [Fatal]
  - Septic shock [Fatal]
  - Sepsis [Fatal]
  - Back pain [Unknown]
  - Urinary retention [Unknown]
  - Flank pain [Unknown]

NARRATIVE: CASE EVENT DATE: 201909
